FAERS Safety Report 10284675 (Version 1)
Quarter: 2014Q3

REPORT INFORMATION
  Report Type: Spontaneous
  Country: US (occurrence: None)
  Receive Date: 20140703
  Receipt Date: 20140703
  Transmission Date: 20150326
  Serious: Yes (Other)
  Sender: FDA-Public Use
  Company Number: None

PATIENT
  Age: 65 Year
  Sex: Male
  Weight: 125 kg

DRUGS (8)
  1. PACLITAXEL 6 MG/ML [Suspect]
     Active Substance: PACLITAXEL
     Indication: LUNG NEOPLASM MALIGNANT
     Dosage: 341 TO 480 MG ONE TIME INTRAVENOUS
     Route: 042
     Dates: start: 20140513, end: 20140624
  2. ONDANSETRON [Concomitant]
     Active Substance: ONDANSETRON
  3. HEPARIN FLUSH [Concomitant]
  4. CARBOPLATIN. [Concomitant]
     Active Substance: CARBOPLATIN
  5. DEXAMETHASONE. [Concomitant]
     Active Substance: DEXAMETHASONE
  6. DIPHENHYDRAMINE [Concomitant]
     Active Substance: DIPHENHYDRAMINE
  7. BEVACIZUMAB [Concomitant]
     Active Substance: BEVACIZUMAB
  8. FAMOTIDINE. [Concomitant]
     Active Substance: FAMOTIDINE

REACTIONS (3)
  - Arthralgia [None]
  - Pain [None]
  - No therapeutic response [None]

NARRATIVE: CASE EVENT DATE: 20140513
